FAERS Safety Report 6863431-6 (Version None)
Quarter: 2010Q3

REPORT INFORMATION
  Report Type: 
  Country: None (occurrence: None)
  Receive Date: 20100719
  Receipt Date: 20100705
  Transmission Date: 20110219
  Serious: Yes (Hospitalization, Other)
  Sender: FDA-Public Use
  Company Number: CL-182-2010

PATIENT
  Age: 89 Year
  Sex: Male

DRUGS (5)
  1. METRONIDAZOLE [Suspect]
     Indication: LEUKOCYTOSIS
  2. AZITHROMYCIN [Suspect]
     Indication: LEUKOCYTOSIS
  3. AZITHROMYCIN [Suspect]
     Indication: ESCHERICHIA BACTERAEMIA
  4. AZITHROMYCIN [Suspect]
     Indication: PNEUMONIA
  5. PIPERACILLIN AND TAZOBACTAM [Suspect]

REACTIONS (3)
  - ACUTE GENERALISED EXANTHEMATOUS PUSTULOSIS [None]
  - OEDEMA PERIPHERAL [None]
  - PANCREATIC MASS [None]
